FAERS Safety Report 24118594 (Version 3)
Quarter: 2024Q4

REPORT INFORMATION
  Report Type: Spontaneous
  Country: CA (occurrence: CA)
  Receive Date: 20240722
  Receipt Date: 20241004
  Transmission Date: 20250115
  Serious: Yes (Death, Other)
  Sender: SANOFI AVENTIS
  Company Number: None

PATIENT
  Age: 69 Year
  Sex: Female
  Weight: 60 kg

DRUGS (27)
  1. CLOPIDOGREL BISULFATE [Suspect]
     Active Substance: CLOPIDOGREL BISULFATE
     Indication: Cerebrovascular accident
     Dosage: 75 MG, QD
     Route: 048
     Dates: start: 2023
  2. ENOXAPARIN SODIUM [Suspect]
     Active Substance: ENOXAPARIN SODIUM
     Indication: Thrombosis
     Dosage: 60 MG, BID
     Route: 058
     Dates: start: 2023
  3. ACETAMINOPHEN [Concomitant]
     Active Substance: ACETAMINOPHEN
     Dosage: UNK
  4. BISACODYL [Concomitant]
     Active Substance: BISACODYL
     Dosage: UNK
  5. CALCIUM CARBONATE [Concomitant]
     Active Substance: CALCIUM CARBONATE
     Dosage: UNK
  6. FOLIC ACID [Concomitant]
     Active Substance: FOLIC ACID
     Dosage: UNK
  7. GLYCERIN ADULT [Concomitant]
     Active Substance: GLYCERIN
     Dosage: UNK
  8. HYDROCHLOROTHIAZIDE [Concomitant]
     Active Substance: HYDROCHLOROTHIAZIDE
     Dosage: UNK
  9. HYDROMORPHONE [Concomitant]
     Active Substance: HYDROMORPHONE
     Dosage: UNK
     Route: 058
  10. LACTULOSE AGD [Concomitant]
     Dosage: UNK
  11. METOPROLOL [Concomitant]
     Active Substance: METOPROLOL
     Dosage: UNK
  12. MULTIVITAMINES WITH IRON [ASCORBIC ACID;CYANOCOBALAMIN;ERGOCALCIFEROL; [Concomitant]
     Dosage: UNK
  13. PANTOPRAZOLE [Concomitant]
     Active Substance: PANTOPRAZOLE
     Dosage: UNK
  14. PEG 3350 [Concomitant]
     Active Substance: POLYETHYLENE GLYCOL 3350
     Dosage: UNK
     Route: 048
  15. PERINDOPRIL [Concomitant]
     Active Substance: PERINDOPRIL
     Dosage: UNK
  16. PHENOBARBITAL [Concomitant]
     Active Substance: PHENOBARBITAL
     Dosage: UNK
  17. POTASSIUM CHLORIDE [Concomitant]
     Active Substance: POTASSIUM CHLORIDE
     Dosage: 5.8 MM
  18. POTASSIUM CHLORIDE [Concomitant]
     Active Substance: POTASSIUM CHLORIDE
     Dosage: 5.6 MM
  19. POTASSIUM CHLORIDE [Concomitant]
     Active Substance: POTASSIUM CHLORIDE
     Dosage: 6.3 MM
  20. POTASSIUM CHLORIDE [Concomitant]
     Active Substance: POTASSIUM CHLORIDE
     Dosage: 5.0 MM
  21. POTASSIUM CHLORIDE [Concomitant]
     Active Substance: POTASSIUM CHLORIDE
     Dosage: 4.2 MM
  22. RISEDRONATE SODIUM [Concomitant]
     Active Substance: RISEDRONATE SODIUM
     Dosage: UNK
  23. RISPERIDONE [Concomitant]
     Active Substance: RISPERIDONE
     Dosage: UNK
  24. SENOKOT [Concomitant]
     Active Substance: SENNOSIDES
     Dosage: UNK
  25. VITAMIN D NOS [Concomitant]
     Active Substance: CHOLECALCIFEROL\ERGOCALCIFEROL
     Dosage: UNK
  26. DICLOFENAC DIETHYLAMINE [Concomitant]
     Active Substance: DICLOFENAC DIETHYLAMINE
     Dosage: UNK
  27. WARFARIN [Concomitant]
     Active Substance: WARFARIN
     Dosage: 1 DF, QD

REACTIONS (2)
  - Acute kidney injury [Fatal]
  - Intra-abdominal haematoma [Fatal]
